FAERS Safety Report 8125534-8 (Version None)
Quarter: 2012Q1

REPORT INFORMATION
  Report Type: 
  Country: None (occurrence: None)
  Receive Date: 20120209
  Receipt Date: 20120202
  Transmission Date: 20120608
  Serious: Yes (Other)
  Sender: FDA-Public Use
  Company Number: PHHY2011DK87929

PATIENT
  Sex: Female

DRUGS (6)
  1. REMICADE [Suspect]
     Indication: RHEUMATOID ARTHRITIS
     Dosage: START DOSE 350 MG WEEK 0,2,6, +8
     Dates: start: 20100115, end: 20110110
  2. METHOTREXATE [Suspect]
     Indication: RHEUMATOID ARTHRITIS
     Dosage: 25 MG, QW
     Route: 058
     Dates: start: 20030720, end: 20110503
  3. METHOTREXATE [Suspect]
  4. REMICADE [Suspect]
  5. MABTHERA [Suspect]
     Indication: RHEUMATOID ARTHRITIS
     Dosage: 1000 MG
     Dates: start: 20110411
  6. MABTHERA [Suspect]

REACTIONS (2)
  - METASTASES TO LYMPH NODES [None]
  - OROPHARYNGEAL CANCER STAGE UNSPECIFIED [None]
